FAERS Safety Report 18663173 (Version 1)
Quarter: 2020Q4

REPORT INFORMATION
  Report Type: Report from Study
  Country: US (occurrence: US)
  Receive Date: 20201224
  Receipt Date: 20201224
  Transmission Date: 20210114
  Serious: Yes (Hospitalization)
  Sender: FDA-Public Use
  Company Number: US-GLAXOSMITHKLINE-US2020GSK251942

PATIENT
  Sex: Female

DRUGS (2)
  1. NIRAPARIB [Suspect]
     Active Substance: NIRAPARIB
     Indication: PANCREATIC CARCINOMA METASTATIC
     Dosage: UNK
  2. DOSTARLIMAB [Suspect]
     Active Substance: DOSTARLIMAB
     Indication: PANCREATIC CARCINOMA METASTATIC
     Dosage: UNK

REACTIONS (2)
  - Paracentesis [Unknown]
  - Pain [Unknown]
